FAERS Safety Report 6660456-0 (Version None)
Quarter: 2010Q1

REPORT INFORMATION
  Report Type: 
  Country: None (occurrence: None)
  Receive Date: 20100331
  Receipt Date: 20100322
  Transmission Date: 20100710
  Serious: Yes (Death, Hospitalization)
  Sender: FDA-Public Use
  Company Number: GB-JNJFOC-20100207418

PATIENT
  Age: 42 Year
  Sex: Male

DRUGS (6)
  1. REMICADE [Suspect]
     Indication: CROHN'S DISEASE
     Route: 042
  2. AMITRIPTYLINE [Concomitant]
     Indication: HEADACHE
     Route: 048
  3. AZATHIOPRINE [Concomitant]
     Indication: CROHN'S DISEASE
  4. OMEPRAZOLE [Concomitant]
     Indication: GASTRITIS
  5. RAMIPRIL [Concomitant]
  6. MELOXICAM [Concomitant]

REACTIONS (4)
  - CARDIAC ARREST [None]
  - HYPOXIA [None]
  - INTESTINAL INFARCTION [None]
  - PERITONEAL ADHESIONS [None]
